FAERS Safety Report 20992018 (Version 1)
Quarter: 2022Q2

REPORT INFORMATION
  Report Type: Spontaneous
  Country: US (occurrence: None)
  Receive Date: 20220620
  Receipt Date: 20220620
  Transmission Date: 20220721
  Serious: No
  Sender: FDA-Public Use
  Company Number: None

PATIENT
  Age: 68 Year
  Sex: Male

DRUGS (2)
  1. DEVICE [Suspect]
     Active Substance: DEVICE
     Indication: Adenocarcinoma pancreas
     Dosage: FREQUENCY : ONCE;?
     Route: 042
     Dates: start: 20220608, end: 20220610
  2. FLUOROURACIL [Suspect]
     Active Substance: FLUOROURACIL
     Route: 041
     Dates: start: 20220608, end: 20220610

REACTIONS (3)
  - Wrong technique in device usage process [None]
  - Incorrect dose administered by device [None]
  - Refusal of treatment by patient [None]

NARRATIVE: CASE EVENT DATE: 20220610
